FAERS Safety Report 5380135-X (Version None)
Quarter: 2007Q3

REPORT INFORMATION
  Report Type: 
  Country: None (occurrence: None)
  Receive Date: 20070706
  Receipt Date: 20070430
  Transmission Date: 20080115
  Serious: No
  Sender: FDA-Public Use
  Company Number: A0649262A

PATIENT
  Age: 77 Year
  Sex: Female

DRUGS (15)
  1. TYKERB [Suspect]
     Indication: BREAST CANCER
     Dosage: 5TAB PER DAY
     Route: 048
     Dates: start: 20070427
  2. XELODA [Concomitant]
  3. DESYREL [Concomitant]
  4. PAXIL [Concomitant]
  5. AMBIEN [Concomitant]
  6. FERROUS SULFATE [Concomitant]
  7. DITROPAN [Concomitant]
  8. OCUVITE [Concomitant]
  9. LYRICA [Concomitant]
  10. UNKNOWN MEDICATION [Concomitant]
  11. METFORMIN HCL [Concomitant]
  12. ASPIRIN [Concomitant]
  13. UNKNOWN MEDICATION [Concomitant]
  14. METHADONE HCL [Concomitant]
  15. GLUCOSAMINE [Concomitant]

REACTIONS (1)
  - DIARRHOEA [None]
